FAERS Safety Report 16532067 (Version 15)
Quarter: 2024Q1

REPORT INFORMATION
  Report Type: Report from Study
  Country: CO (occurrence: CO)
  Receive Date: 20190704
  Receipt Date: 20240129
  Transmission Date: 20240409
  Serious: Yes (Other)
  Sender: FDA-Public Use
  Company Number: CO-AEGERION PHARMACEUTICAL, INC-AEGR004364

PATIENT

DRUGS (22)
  1. METRELEPTIN [Suspect]
     Active Substance: METRELEPTIN
     Indication: Acquired generalised lipodystrophy
     Dosage: 0.06 MG/KG (0.02 ML) , QD
     Dates: start: 20170527
  2. METRELEPTIN [Suspect]
     Active Substance: METRELEPTIN
     Dosage: 0.10 MG/KG, QD
     Route: 058
     Dates: end: 20190422
  3. METRELEPTIN [Suspect]
     Active Substance: METRELEPTIN
     Dosage: 0.11 MG/KG (0.46 ML/ 2,36MG/DAIY) QD
     Route: 058
     Dates: start: 20190423, end: 20190723
  4. METRELEPTIN [Suspect]
     Active Substance: METRELEPTIN
     Dosage: 0.12 MG/KG, QD (TOTAL DOSE DAY DIVIDED)
     Dates: start: 20200303
  5. METRELEPTIN [Suspect]
     Active Substance: METRELEPTIN
     Dosage: 4.188 MG (PER DAY)
     Dates: start: 20210221
  6. METRELEPTIN [Suspect]
     Active Substance: METRELEPTIN
     Dosage: 1.9 MILLIGRAM, Q12HRS
  7. LEVEMIR [Concomitant]
     Active Substance: INSULIN DETEMIR
     Indication: Type 1 diabetes mellitus
     Dosage: 38 UNK, AM AND PM ( IN 2 DOSES)
     Route: 058
     Dates: start: 20120530
  8. LEVEMIR [Concomitant]
     Active Substance: INSULIN DETEMIR
     Dosage: 42 UNITS, QD (PM)
     Route: 058
  9. LEVEMIR [Concomitant]
     Active Substance: INSULIN DETEMIR
     Dosage: 40 INTERNATIONAL UNIT, CODA 24HRS
     Dates: start: 201608
  10. INSULIN LISPRO [Concomitant]
     Active Substance: INSULIN LISPRO
     Indication: Type 1 diabetes mellitus
     Dosage: 8 UNITS, BEFORE MEALS
     Route: 058
     Dates: start: 20120530
  11. INSULIN LISPRO [Concomitant]
     Active Substance: INSULIN LISPRO
     Dosage: 10-6-4, UNK
     Route: 058
  12. THYROXINE [Concomitant]
     Active Substance: LEVOTHYROXINE
     Indication: Autoimmune thyroiditis
     Dosage: 50 MCG, QD
     Route: 048
     Dates: start: 20130807
  13. THYROXINE [Concomitant]
     Active Substance: LEVOTHYROXINE
     Indication: Hypothyroidism
  14. OMEGA-3 FATTY ACIDS [Concomitant]
     Active Substance: OMEGA-3 FATTY ACIDS
     Indication: Hypertriglyceridaemia
     Dosage: 3 G, QD, BEFORE EACH MEAL
     Route: 048
     Dates: start: 20160307
  15. GEMFIBROZIL [Concomitant]
     Active Substance: GEMFIBROZIL
     Indication: Hypertriglyceridaemia
     Dosage: 400 MG, BID
     Route: 048
     Dates: start: 20190417
  16. GEMFIBROZIL [Concomitant]
     Active Substance: GEMFIBROZIL
     Dosage: 300 MILLIGRAM CODS 24 HOURS
     Dates: start: 20190206
  17. INSULIN NOS [Concomitant]
     Active Substance: INSULIN NOS
     Indication: Product used for unknown indication
  18. LEVOTHYROXINE [Concomitant]
     Active Substance: LEVOTHYROXINE\LEVOTHYROXINE SODIUM
     Indication: Autoimmune thyroiditis
     Dosage: 50 MILLIGRAM, CODA 24HRS (INITIATED PRIOR TO METRELEPTIN)
     Dates: start: 202309
  19. LEVOTHYROXINE [Concomitant]
     Active Substance: LEVOTHYROXINE\LEVOTHYROXINE SODIUM
     Indication: Hypothyroidism
  20. NOVORAPID [Concomitant]
     Active Substance: INSULIN ASPART
     Indication: Type 1 diabetes mellitus
     Dosage: 10 INTERNATIONAL UNIT, PRE DESAYUNO
     Dates: start: 202202
  21. NOVORAPID [Concomitant]
     Active Substance: INSULIN ASPART
     Dosage: 60 INTERNATIONAL UNIT,PRE ALMUERZA
     Dates: start: 202202
  22. NOVORAPID [Concomitant]
     Active Substance: INSULIN ASPART
     Dosage: 50 INTERNATIONAL UNIT, PRE CENA
     Dates: start: 202202

REACTIONS (13)
  - Hepatic steatosis [Recovering/Resolving]
  - Condition aggravated [Recovering/Resolving]
  - Alanine aminotransferase increased [Recovered/Resolved]
  - Aspartate aminotransferase increased [Recovered/Resolved]
  - Diabetes mellitus [Recovering/Resolving]
  - Insulin resistance [Recovering/Resolving]
  - Hypertriglyceridaemia [Recovering/Resolving]
  - Hyperphagia [Recovering/Resolving]
  - Neutralising antibodies positive [Not Recovered/Not Resolved]
  - Drug ineffective [Recovering/Resolving]
  - Product dose omission issue [Unknown]
  - Product physical issue [Recovered/Resolved]
  - Diet noncompliance [Recovering/Resolving]

NARRATIVE: CASE EVENT DATE: 20171121
